FAERS Safety Report 4642525-X (Version None)
Quarter: 2005Q2

REPORT INFORMATION
  Report Type: 
  Country: None (occurrence: None)
  Receive Date: 20050422
  Receipt Date: 20050411
  Transmission Date: 20051028
  Serious: Yes (Other)
  Sender: FDA-Public Use
  Company Number: US-GLAXOSMITHKLINE-A0553498A

PATIENT
  Age: 91 Year
  Sex: Female

DRUGS (1)
  1. TUMS [Suspect]
     Indication: HIATUS HERNIA
     Route: 048
     Dates: start: 19850101

REACTIONS (6)
  - ABDOMINAL PAIN [None]
  - DIVERTICULUM [None]
  - DRUG INEFFECTIVE [None]
  - DYSPNOEA [None]
  - EMPHYSEMA [None]
  - RENAL CELL CARCINOMA STAGE UNSPECIFIED [None]
